FAERS Safety Report 6931042-X (Version None)
Quarter: 2010Q3

REPORT INFORMATION
  Report Type: 
  Country: None (occurrence: None)
  Receive Date: 20100817
  Receipt Date: 20100817
  Transmission Date: 20110219
  Serious: Yes (Other)
  Sender: FDA-Public Use
  Company Number: None

PATIENT
  Age: 84 Year
  Sex: Female
  Weight: 49.89 kg

DRUGS (1)
  1. METOCLOPRAMIDE INJECTION [Suspect]
     Indication: PROCEDURAL NAUSEA
     Dosage: 10MG Q4HR PRN N/V IV 16:04 (ONE DOSE)
     Route: 042
     Dates: start: 20100111

REACTIONS (3)
  - DISORIENTATION [None]
  - DYSKINESIA [None]
  - DYSTONIA [None]
